FAERS Safety Report 9856464 (Version 3)
Quarter: 2014Q1

REPORT INFORMATION
  Report Type: Report from Study
  Country: US (occurrence: US)
  Receive Date: 20140130
  Receipt Date: 20140228
  Transmission Date: 20141002
  Serious: Yes (Other)
  Sender: FDA-Public Use
  Company Number: US-BAYER-2014-007276

PATIENT
  Age: 66 Year
  Sex: Female

DRUGS (1)
  1. STIVARGA [Suspect]
     Indication: COLON CANCER
     Dosage: 160 MG, QD X 21 OF 28 DAYS
     Route: 048
     Dates: start: 20131213, end: 20140123

REACTIONS (6)
  - Aphagia [None]
  - Vomiting [None]
  - Change of bowel habit [None]
  - Weight decreased [None]
  - Stomatitis [None]
  - Oral pain [None]
